FAERS Safety Report 4485256-1 (Version None)
Quarter: 2004Q4

REPORT INFORMATION
  Report Type: 
  Country: None (occurrence: None)
  Receive Date: 20041021
  Receipt Date: 20041006
  Transmission Date: 20050328
  Serious: Yes (Other)
  Sender: FDA-Public Use
  Company Number: 430035M04USA

PATIENT
  Age: 54 Year
  Sex: Female

DRUGS (6)
  1. NOVANTRONE [Suspect]
     Indication: MULTIPLE SCLEROSIS
     Dates: start: 20030101
  2. INTERFERON BETA [Suspect]
     Indication: MULTIPLE SCLEROSIS
  3. MODAFINIL [Concomitant]
  4. BACLOFEN [Concomitant]
  5. ASCORBIC ACID [Concomitant]
  6. TOCOPHEROL CONCENTRATE CAP [Concomitant]

REACTIONS (14)
  - BACK PAIN [None]
  - CARDIOMYOPATHY [None]
  - CHEST PAIN [None]
  - CHILLS [None]
  - FEELING HOT [None]
  - GASTRIC DISORDER [None]
  - INFLUENZA LIKE ILLNESS [None]
  - MUSCLE TIGHTNESS [None]
  - NERVOUSNESS [None]
  - OEDEMA PERIPHERAL [None]
  - PAIN IN EXTREMITY [None]
  - PULMONARY OEDEMA [None]
  - PYREXIA [None]
  - SLEEP DISORDER [None]
